FAERS Safety Report 8989008 (Version 2)
Quarter: 2013Q1

REPORT INFORMATION
  Report Type: Spontaneous
  Country: JP (occurrence: JP)
  Receive Date: 20121227
  Receipt Date: 20130220
  Transmission Date: 20140127
  Serious: Yes (Other)
  Sender: FDA-Public Use
  Company Number: JP-PFIZER INC-2012328902

PATIENT
  Age: 88 Year
  Sex: Female
  Weight: 31.3 kg

DRUGS (11)
  1. LYRICA [Suspect]
     Indication: NEUROPATHY PERIPHERAL
     Dosage: 25 MG, 1X/DAY
     Route: 048
     Dates: start: 20120914, end: 20120924
  2. LYRICA [Suspect]
     Indication: POST HERPETIC NEURALGIA
  3. CALONAL [Concomitant]
     Dosage: UNK
     Route: 048
  4. PURSENNID [Concomitant]
     Dosage: UNK
     Route: 048
  5. AMOBAN [Concomitant]
     Dosage: UNK
     Route: 048
  6. LASIX [Concomitant]
     Dosage: UNK
  7. ALDACTONE [Concomitant]
     Dosage: UNK
     Route: 048
  8. ARTIST [Concomitant]
     Dosage: UNK
     Route: 048
  9. KAYEXALATE [Concomitant]
     Dosage: UNK
     Route: 048
  10. GASMOTIN [Concomitant]
     Dosage: UNK
     Route: 048
  11. OMEPRAL [Concomitant]
     Dosage: UNK

REACTIONS (4)
  - Suicidal ideation [Recovered/Resolved]
  - Suicide attempt [Unknown]
  - Feeling abnormal [Recovered/Resolved]
  - Headache [Recovered/Resolved]
